FAERS Safety Report 4707553-4 (Version None)
Quarter: 2005Q3

REPORT INFORMATION
  Report Type: 
  Country: None (occurrence: None)
  Receive Date: 20050706
  Receipt Date: 20050619
  Transmission Date: 20060218
  Serious: Yes (Other)
  Sender: FDA-Public Use
  Company Number: BE-JNJFOC-20050105150

PATIENT
  Sex: Male
  Weight: 82 kg

DRUGS (9)
  1. TOPAMAX [Suspect]
     Route: 049
  2. TOPAMAX [Suspect]
     Indication: DRUG USE FOR UNKNOWN INDICATION
     Route: 049
  3. CONVULEX [Interacting]
     Route: 049
  4. CONVULEX [Interacting]
     Indication: EPILEPSY
     Route: 049
  5. TRILEPTAL [Concomitant]
     Route: 049
  6. TRAZOLAN [Concomitant]
     Indication: SLEEP DISORDER THERAPY
     Route: 049
  7. RISPERDAL [Concomitant]
     Route: 049
  8. DIPIPERON [Concomitant]
     Route: 049
  9. CIPRAMIL [Concomitant]
     Indication: DEPRESSION
     Route: 065

REACTIONS (5)
  - DRUG INTERACTION [None]
  - GRAND MAL CONVULSION [None]
  - HYPOTHERMIA [None]
  - METABOLIC ENCEPHALOPATHY [None]
  - OEDEMA PERIPHERAL [None]
